FAERS Safety Report 24252674 (Version 2)
Quarter: 2024Q3

REPORT INFORMATION
  Report Type: Spontaneous
  Country: IT (occurrence: IT)
  Receive Date: 20240827
  Receipt Date: 20240830
  Transmission Date: 20241017
  Serious: Yes (Life-Threatening, Other)
  Sender: BRISTOL MYERS SQUIBB
  Company Number: None

PATIENT
  Age: 83 Year
  Sex: Female
  Weight: 43 kg

DRUGS (16)
  1. APIXABAN [Suspect]
     Active Substance: APIXABAN
     Indication: Deep vein thrombosis
     Dosage: APIXABAN 10 MG X2 FOR ONE WEEK
     Route: 048
     Dates: start: 20240724, end: 20240810
  2. APIXABAN [Suspect]
     Active Substance: APIXABAN
     Dosage: 1 CPX2
     Route: 048
  3. PIPERACILLIN SODIUM\TAZOBACTAM SODIUM [Suspect]
     Active Substance: PIPERACILLIN SODIUM\TAZOBACTAM SODIUM
     Indication: Pneumonitis
     Dosage: 4.5G X3 EV
     Route: 042
     Dates: start: 20240729, end: 20240802
  4. AMOXICILLIN\CLAVULANATE POTASSIUM [Suspect]
     Active Substance: AMOXICILLIN\CLAVULANATE POTASSIUM
     Indication: Pneumonitis
     Route: 042
     Dates: start: 20240722, end: 20240729
  5. DOXYCYCLINE [Suspect]
     Active Substance: DOXYCYCLINE\DOXYCYCLINE HYCLATE
     Indication: Pneumonitis
     Dosage: 100 MG X2 TABLET
     Route: 048
     Dates: start: 20240802, end: 20240808
  6. CEFTAZIDIME [Suspect]
     Active Substance: CEFTAZIDIME
     Indication: Pneumonitis
     Dosage: 1 G X3 EV
     Route: 042
     Dates: start: 20240802, end: 20240808
  7. PANTOPRAZOLE SODIUM [Concomitant]
     Active Substance: PANTOPRAZOLE SODIUM
     Indication: Product used for unknown indication
     Dosage: PANTOPRAZOLE 40 MG X2 EV
     Route: 042
  8. RAMIPRIL [Concomitant]
     Active Substance: RAMIPRIL
     Indication: Hypertension
     Dosage: 2.5 MG
  9. BREVA [Concomitant]
     Active Substance: ALBUTEROL\IPRATROPIUM
     Indication: Chronic obstructive pulmonary disease
     Dosage: 7 DROPS X3
     Route: 055
  10. SELEGILINA [SELEGILINE] [Concomitant]
     Indication: Parkinsonism
     Dosage: 5 MG DAILY
     Route: 048
  11. FLUTICASONE [Concomitant]
     Active Substance: FLUTICASONE
     Indication: Chronic obstructive pulmonary disease
     Dosage: 1/2 AMPOULE X3
     Route: 055
  12. PREDNISONE [Concomitant]
     Active Substance: PREDNISONE
     Indication: Chronic obstructive pulmonary disease
     Dosage: 25 MG 1 CP TO SCALE FROM 30-7, PREVIOUSLY FROM 23-7 METHYLPREDNISOLONE 40 MG X2 TO SCALE
     Route: 048
  13. CALCIO FOLINATO [Concomitant]
     Indication: Folate deficiency
     Dosage: 15 MG
     Route: 048
  14. LEVOTHYROXINE [Concomitant]
     Active Substance: LEVOTHYROXINE\LEVOTHYROXINE SODIUM
     Indication: Hypothyroidism
     Dosage: 50 MCG
  15. CHOLECALCIFEROL [Concomitant]
     Active Substance: CHOLECALCIFEROL
     Indication: Vitamin D deficiency
     Dosage: 10000 UNITS 28 DROPS
  16. METHYLPREDNISOLONE [Concomitant]
     Active Substance: METHYLPREDNISOLONE
     Indication: Product used for unknown indication
     Dosage: 23-7 METHYLPREDNISOLONE 40 MG X2 TO SCALE

REACTIONS (1)
  - Thrombocytopenia [Not Recovered/Not Resolved]

NARRATIVE: CASE EVENT DATE: 20240806
